FAERS Safety Report 20165930 (Version 1)
Quarter: 2021Q4

REPORT INFORMATION
  Report Type: Spontaneous
  Country: FR (occurrence: FR)
  Receive Date: 20211209
  Receipt Date: 20211209
  Transmission Date: 20220303
  Serious: Yes (Hospitalization)
  Sender: FDA-Public Use
  Company Number: None

PATIENT
  Age: 39 Year
  Sex: Male

DRUGS (5)
  1. VALIUM [Suspect]
     Active Substance: DIAZEPAM
     Indication: Product used for unknown indication
     Route: 065
     Dates: end: 20210913
  2. CANNABIS SATIVA SUBSP. INDICA TOP [Suspect]
     Active Substance: CANNABIS SATIVA SUBSP. INDICA TOP
     Indication: Product used for unknown indication
     Route: 065
  3. ZOPICLONE [Suspect]
     Active Substance: ZOPICLONE
     Indication: Product used for unknown indication
     Route: 065
  4. ALCOHOL [Suspect]
     Active Substance: ALCOHOL
     Indication: Product used for unknown indication
     Route: 048
  5. TOBACCO LEAF [Suspect]
     Active Substance: TOBACCO LEAF
     Indication: Product used for unknown indication
     Route: 055

REACTIONS (8)
  - Pyloric stenosis [Recovering/Resolving]
  - Vomiting [Recovered/Resolved]
  - Gastritis haemorrhagic [Recovering/Resolving]
  - Abdominal pain [Recovered/Resolved]
  - Drug abuse [Unknown]
  - Necrotising gastritis [Recovering/Resolving]
  - Haematemesis [Recovered/Resolved]
  - Duodenitis [Recovering/Resolving]

NARRATIVE: CASE EVENT DATE: 20130914
